FAERS Safety Report 12228388 (Version 1)
Quarter: 2016Q2

REPORT INFORMATION
  Report Type: Spontaneous
  Country: JP (occurrence: JP)
  Receive Date: 20160401
  Receipt Date: 20160401
  Transmission Date: 20160815
  Serious: Yes (Life-Threatening, Hospitalization, Disabling, Other)
  Sender: FDA-Public Use
  Company Number: JP-009507513-1504JPN014844

PATIENT
  Age: 76 Year
  Sex: Female
  Weight: 60 kg

DRUGS (24)
  1. CUBICIN [Suspect]
     Active Substance: DAPTOMYCIN
     Indication: SUBCUTANEOUS ABSCESS
     Dosage: 10 MG/KG PER DAY, DIVIDED DOSE FREQUENCY UNKNOWN
     Route: 041
     Dates: start: 20140112, end: 20140115
  2. MEROPENEM. [Concomitant]
     Active Substance: MEROPENEM
     Indication: PELVIC ABSCESS
  3. ALBUMINAR [Concomitant]
     Active Substance: ALBUMIN HUMAN
     Indication: HYPOALBUMINAEMIA
     Dosage: 50 ML PER DAY, DIVIDED DOSE FREQUENCY UNKNOWN
     Route: 041
     Dates: start: 20131224, end: 20131231
  4. PROMAC [Concomitant]
     Active Substance: NITROFURANTOIN
     Indication: ZINC DEFICIENCY
  5. NORVASC [Concomitant]
     Active Substance: AMLODIPINE BESYLATE
     Indication: HYPERTENSION
     Dosage: 5 MG, ONCE DAILY
     Route: 048
     Dates: start: 20131227, end: 20140114
  6. MIYA-BM [Concomitant]
     Active Substance: CLOSTRIDIUM BUTYRICUM SPORES STRAIN M-55
     Indication: ENTEROCOLITIS
     Dosage: 2 DF, TID
     Route: 048
     Dates: start: 20131224
  7. CUBICIN [Suspect]
     Active Substance: DAPTOMYCIN
     Indication: ENDOCARDITIS
     Dosage: 8 MG/KG PER DAY, DIVIDED DOSE FREQUENCY UNKNOWN
     Route: 041
     Dates: start: 20140102, end: 20140111
  8. MEROPENEM. [Concomitant]
     Active Substance: MEROPENEM
     Indication: SEPSIS
     Dosage: 1 G, BID
     Route: 041
     Dates: start: 20131224, end: 20131226
  9. ALBUMINAR [Concomitant]
     Active Substance: ALBUMIN HUMAN
     Dosage: 50 ML PER DAY, DIVIDED DOSE FREQUENCY UNKNOWN
     Route: 041
     Dates: start: 20140108, end: 20140108
  10. MUCOSTA [Concomitant]
     Active Substance: REBAMIPIDE
     Indication: GASTRIC ULCER
     Dosage: 100 MG, TID
     Route: 048
     Dates: start: 20131231, end: 20140108
  11. ALBUMINAR [Concomitant]
     Active Substance: ALBUMIN HUMAN
     Dosage: 50 ML PER DAY, DIVIDED DOSE FREQUENCY UNKNOWN
     Route: 041
     Dates: start: 20140103, end: 20140103
  12. AZILVA [Concomitant]
     Active Substance: AZILSARTAN KAMEDOXOMIL
     Indication: HYPERTENSION
     Dosage: 20 MG, ONCE DAILY
     Route: 048
     Dates: start: 20131228, end: 20140114
  13. ALLELOCK [Concomitant]
     Active Substance: OLOPATADINE HYDROCHLORIDE
     Indication: RASH
     Dosage: 5 MG, BID
     Route: 048
     Dates: start: 20140106, end: 20140109
  14. CUBICIN [Suspect]
     Active Substance: DAPTOMYCIN
     Indication: PELVIC ABSCESS
  15. MEROPENEM. [Concomitant]
     Active Substance: MEROPENEM
     Indication: SACROILIITIS
  16. CALONAL [Concomitant]
     Active Substance: ACETAMINOPHEN
     Indication: PYREXIA
     Dosage: 1 DF, AS NEEDED
     Route: 048
     Dates: start: 20131225, end: 20140105
  17. KAYTWO N [Concomitant]
     Active Substance: MENATETRENONE
     Indication: PROTHROMBIN LEVEL DECREASED
     Dosage: 20 MG PER DAY, DIVIDED DOSE FREQUENCY UNKNOWN
     Route: 041
     Dates: start: 20131231, end: 20140104
  18. CEFAMEZIN [Concomitant]
     Active Substance: CEFAZOLIN
     Indication: URINARY TRACT INFECTION
     Dosage: 1 G, TID
     Route: 041
     Dates: start: 20140107, end: 20140111
  19. ROZEREM [Concomitant]
     Active Substance: RAMELTEON
     Indication: INSOMNIA
     Dosage: 8 MG, ONCE DAILY
     Route: 048
     Dates: start: 20140107, end: 20140113
  20. SENNOSIDE [Concomitant]
     Active Substance: SENNOSIDES
     Indication: CONSTIPATION
     Dosage: 2 DF, AS NEEDED
     Route: 048
     Dates: start: 20131227, end: 20140104
  21. NEXIUM [Suspect]
     Active Substance: ESOMEPRAZOLE MAGNESIUM
     Indication: GASTRIC ULCER
     Dosage: 20 MG, ONCE DAILY
     Route: 048
     Dates: start: 20131231, end: 20140114
  22. PROMAC [Concomitant]
     Active Substance: NITROFURANTOIN
     Indication: PROPHYLAXIS AGAINST GASTROINTESTINAL ULCER
     Dosage: 75 MG, BID
     Route: 048
     Dates: start: 20131224, end: 20140114
  23. CUBICIN [Suspect]
     Active Substance: DAPTOMYCIN
     Indication: STAPHYLOCOCCAL INFECTION
     Dosage: 6 MG/KG PER DAY, DIVIDED DOSE FREQUENCY UNKNOWN
     Route: 041
     Dates: start: 20131225, end: 20140101
  24. NORVASC [Concomitant]
     Active Substance: AMLODIPINE BESYLATE
     Dosage: 2.5 MG, ONCE DAILY
     Route: 048
     Dates: start: 20140107, end: 20140114

REACTIONS (6)
  - Renal impairment [Not Recovered/Not Resolved]
  - Eosinophilic pneumonia acute [Recovering/Resolving]
  - Hepatic function abnormal [Recovering/Resolving]
  - Urinary tract infection [Recovering/Resolving]
  - Rash [Recovering/Resolving]
  - Respiratory failure [Recovering/Resolving]

NARRATIVE: CASE EVENT DATE: 20131226
